FAERS Safety Report 26185475 (Version 1)
Quarter: 2025Q4

REPORT INFORMATION
  Report Type: Spontaneous
  Country: US (occurrence: US)
  Receive Date: 20251222
  Receipt Date: 20251222
  Transmission Date: 20260117
  Serious: No
  Sender: DR REDDYS
  Company Number: US-DRL-USA-USA/2025/12/018506

PATIENT
  Sex: Female

DRUGS (1)
  1. DOANS MAXIMUM STRENGTH [Suspect]
     Active Substance: MAGNESIUM SALICYLATE
     Indication: Analgesic therapy

REACTIONS (1)
  - Drug ineffective [Unknown]
